FAERS Safety Report 8049214-2 (Version None)
Quarter: 2012Q1

REPORT INFORMATION
  Report Type: 
  Country: None (occurrence: None)
  Receive Date: 20120117
  Receipt Date: 20120113
  Transmission Date: 20120608
  Serious: Yes (Other)
  Sender: FDA-Public Use
  Company Number: CA-ROCHE-1030659

PATIENT
  Sex: Male
  Weight: 99.88 kg

DRUGS (7)
  1. AVASTIN [Suspect]
     Indication: HEPATIC CANCER METASTATIC
     Route: 042
     Dates: start: 20110615
  2. ZOFRAN [Concomitant]
  3. IMODIUM [Concomitant]
     Route: 042
  4. AVASTIN [Suspect]
     Indication: COLORECTAL CANCER
  5. INNOHEP [Concomitant]
  6. AMLODIPINE [Concomitant]
  7. AVASTIN [Suspect]
     Indication: LUNG CANCER METASTATIC

REACTIONS (1)
  - ASCITES [None]
